FAERS Safety Report 23844342 (Version 4)
Quarter: 2025Q3

REPORT INFORMATION
  Report Type: Report from Study
  Country: US (occurrence: US)
  Receive Date: 20240510
  Receipt Date: 20250816
  Transmission Date: 20251020
  Serious: No
  Sender: ALEXION PHARMACEUTICALS
  Company Number: US-ALXN-202405USA000371US

PATIENT
  Sex: Male
  Weight: 131.52 kg

DRUGS (15)
  1. ULTOMIRIS [Suspect]
     Active Substance: RAVULIZUMAB-CWVZ
     Indication: Myasthenia gravis
     Dosage: 3600 MILLIGRAM, Q8W
     Dates: start: 20231228
  2. AZATHIOPRINE [Concomitant]
     Active Substance: AZATHIOPRINE
     Route: 065
  3. INDAPAMIDE [Concomitant]
     Active Substance: INDAPAMIDE
     Route: 065
  4. OLMESARTAN MEDOXOMIL [Concomitant]
     Active Substance: OLMESARTAN MEDOXOMIL
     Route: 065
  5. ELIQUIS [Concomitant]
     Active Substance: APIXABAN
     Route: 065
  6. METOPROLOL SUCCINATE [Concomitant]
     Active Substance: METOPROLOL SUCCINATE
     Route: 065
  7. FENOFIBRATE [Concomitant]
     Active Substance: FENOFIBRATE
     Route: 065
  8. ACETAMINOPHEN [Concomitant]
     Active Substance: ACETAMINOPHEN
     Route: 065
  9. ASPIRIN [Concomitant]
     Active Substance: ASPIRIN
  10. EPINEPHRINE [Concomitant]
     Active Substance: EPINEPHRINE
     Route: 065
  11. SODIUM CHLORIDE [Concomitant]
     Active Substance: SODIUM CHLORIDE
     Route: 065
  12. LIDOCAINE [Concomitant]
     Active Substance: LIDOCAINE
     Route: 065
  13. DIPHENHYDRAMINE HYDROCHLORIDE [Concomitant]
     Active Substance: DIPHENHYDRAMINE HYDROCHLORIDE
     Route: 065
  14. AMLODIPINE BESYLATE [Concomitant]
     Active Substance: AMLODIPINE BESYLATE
     Route: 065
  15. SODIUM CHLORIDE [Concomitant]
     Active Substance: SODIUM CHLORIDE
     Route: 065

REACTIONS (9)
  - Fatigue [Unknown]
  - Muscular weakness [Recovered/Resolved]
  - Overweight [Unknown]
  - Vision blurred [Unknown]
  - Gait disturbance [Unknown]
  - Oedema peripheral [Recovered/Resolved]
  - Scab [Unknown]
  - Dermatillomania [Unknown]
  - Diplopia [Unknown]
